FAERS Safety Report 5807207-7 (Version None)
Quarter: 2008Q3

REPORT INFORMATION
  Report Type: 
  Country: None (occurrence: None)
  Receive Date: 20080711
  Receipt Date: 20080702
  Transmission Date: 20090109
  Serious: Yes (Hospitalization)
  Sender: FDA-Public Use
  Company Number: B0527828A

PATIENT
  Age: 62 Year
  Sex: Female

DRUGS (3)
  1. OMACOR [Suspect]
     Indication: HYPERTRIGLYCERIDAEMIA
     Dosage: 4000MG PER DAY
     Route: 048
  2. NORMALIP PRO [Suspect]
     Indication: HYPERTRIGLYCERIDAEMIA
     Route: 065
  3. SOFT FOOD DIET [Concomitant]
     Indication: HYPERTRIGLYCERIDAEMIA
     Route: 065

REACTIONS (6)
  - ABDOMINAL SYMPTOM [None]
  - CONDITION AGGRAVATED [None]
  - PANCREATIC ABSCESS [None]
  - PANCREATITIS [None]
  - PANCREATITIS HAEMORRHAGIC [None]
  - RESPIRATORY FAILURE [None]
